FAERS Safety Report 15049210 (Version 1)
Quarter: 2018Q3

REPORT INFORMATION
  Report Type: Spontaneous
  Country: US (occurrence: US)
  Receive Date: 20180622
  Receipt Date: 20180622
  Transmission Date: 20181010
  Serious: No
  Sender: FDA-Public Use
  Company Number: US-TEVA-2018-US-911475

PATIENT
  Sex: Female

DRUGS (1)
  1. TRINESSA LO [Suspect]
     Active Substance: ETHINYL ESTRADIOL\NORGESTIMATE
     Dosage: TRINESSA LO,0.180 MG / 0.025 MG; 0.215 MG / 0.025 MG; 0.250 MG / 0.025 MG
     Route: 065

REACTIONS (1)
  - Inappropriate schedule of drug administration [Unknown]
